FAERS Safety Report 24426530 (Version 1)
Quarter: 2024Q4

REPORT INFORMATION
  Report Type: Spontaneous
  Country: CA (occurrence: CA)
  Receive Date: 20241011
  Receipt Date: 20241011
  Transmission Date: 20250114
  Serious: Yes (Other)
  Sender: TERSERA THERAPEUTICS
  Company Number: CA-TERSERA THERAPEUTICS LLC-2024TRS005038

PATIENT

DRUGS (8)
  1. GOSERELIN [Suspect]
     Active Substance: GOSERELIN
     Indication: Prostate cancer
     Dosage: 10.8 MG, EVERY 12 WEEKS
     Route: 058
     Dates: start: 2022
  2. ZOLADEX [Suspect]
     Active Substance: GOSERELIN ACETATE
     Indication: Prostate cancer
  3. CALCIUM [Concomitant]
     Active Substance: CALCIUM
     Indication: Bone density abnormal
     Dosage: UNK
     Route: 065
  4. ERLEADA [Concomitant]
     Active Substance: APALUTAMIDE
     Indication: Neoplasm malignant
     Dosage: 60 MG
     Route: 065
  5. ROSUVASTATIN [Concomitant]
     Active Substance: ROSUVASTATIN
     Indication: Blood cholesterol
     Dosage: 40 MG, QD
     Route: 065
  6. EZETIMIBE [Concomitant]
     Active Substance: EZETIMIBE
     Indication: Blood cholesterol
     Dosage: 10 MG
     Route: 065
  7. METOPROLOL [Concomitant]
     Active Substance: METOPROLOL
     Indication: Blood cholesterol
     Dosage: 25MG, 0.5 TABLET TWICE DAILY
  8. ASPIRIN [Concomitant]
     Active Substance: ASPIRIN
     Indication: Blood cholesterol
     Dosage: 80 MG
     Route: 065

REACTIONS (6)
  - Vascular graft [Unknown]
  - Hip fracture [Unknown]
  - Body height decreased [Unknown]
  - Pain [Unknown]
  - Injection site haemorrhage [Recovered/Resolved]
  - Bone density decreased [Unknown]
